FAERS Safety Report 7050559-3 (Version None)
Quarter: 2010Q4

REPORT INFORMATION
  Report Type: 
  Country: None (occurrence: None)
  Receive Date: 20101018
  Receipt Date: 20101013
  Transmission Date: 20110411
  Serious: Yes (Hospitalization, Other)
  Sender: FDA-Public Use
  Company Number: US-CEPHALON-2010003642

PATIENT
  Sex: Male
  Weight: 71 kg

DRUGS (13)
  1. TREANDA [Suspect]
     Indication: CHRONIC LYMPHOCYTIC LEUKAEMIA RECURRENT
     Route: 041
     Dates: start: 20100525, end: 20100623
  2. OFATUMUMAB [Suspect]
     Indication: CHRONIC LYMPHOCYTIC LEUKAEMIA RECURRENT
     Route: 042
     Dates: start: 20100518, end: 20100622
  3. ZITHROMAX [Concomitant]
     Indication: UPPER RESPIRATORY TRACT INFECTION
  4. VALTREX [Concomitant]
     Indication: HERPES ZOSTER
  5. ALFUZOSIN [Concomitant]
     Indication: BENIGN PROSTATIC HYPERPLASIA
  6. MULTI-VITAMINS [Concomitant]
     Indication: VITAMIN SUPPLEMENTATION
  7. ALLOPURINOL [Concomitant]
     Indication: BLOOD URIC ACID INCREASED
     Dates: start: 20100630
  8. IMMUNE GLOBULIN INTRAVENOUS (HUMAN) [Concomitant]
  9. FLOMAX [Concomitant]
  10. ACETAMINOPHEN [Concomitant]
  11. MEGESTROL ACETATE [Concomitant]
  12. MIRTAZAPINE [Concomitant]
  13. ZINC SULFATE [Concomitant]

REACTIONS (7)
  - ASTHENIA [None]
  - BLUNTED AFFECT [None]
  - CONFUSIONAL STATE [None]
  - DEHYDRATION [None]
  - FAILURE TO THRIVE [None]
  - FATIGUE [None]
  - NEUTROPENIA [None]
